FAERS Safety Report 16724405 (Version 1)
Quarter: 2019Q3

REPORT INFORMATION
  Report Type: Spontaneous
  Country: US (occurrence: US)
  Receive Date: 20190821
  Receipt Date: 20190821
  Transmission Date: 20191005
  Serious: No
  Sender: FDA-Public Use
  Company Number: US-MYLANLABS-2019M1076877

PATIENT
  Sex: Female
  Weight: 67 kg

DRUGS (11)
  1. SPIRIVA [Concomitant]
     Active Substance: TIOTROPIUM BROMIDE MONOHYDRATE
  2. LITHIZINE [Concomitant]
     Active Substance: LITHIUM CARBONATE
  3. BACTRIM [Concomitant]
     Active Substance: SULFAMETHOXAZOLE\TRIMETHOPRIM
     Dosage: UNK, 3XW
  4. MONTELUKAST [Concomitant]
     Active Substance: MONTELUKAST SODIUM
  5. DUPIXENT [Concomitant]
     Active Substance: DUPILUMAB
     Dosage: BIOLOGIC THERAPY, Q2W
  6. PREDNISONE. [Concomitant]
     Active Substance: PREDNISONE
  7. AMLODIPINE [Concomitant]
     Active Substance: AMLODIPINE BESYLATE
     Dosage: UNK, QD
  8. BENADRYL [Concomitant]
     Active Substance: DIPHENHYDRAMINE HYDROCHLORIDE
     Dosage: UNK, QD
  9. HYDRALAZINE [Concomitant]
     Active Substance: HYDRALAZINE HYDROCHLORIDE
     Dosage: UNK, QD
  10. EPINEPHRINE INJECTION USP AUTO-INJECTOR [Suspect]
     Active Substance: EPINEPHRINE
     Indication: ANAPHYLACTIC REACTION
     Dosage: UNK
     Route: 030
     Dates: start: 20190801, end: 20190801
  11. LASIKAL [Concomitant]
     Dosage: UNK, QD

REACTIONS (1)
  - Injection site pain [Recovered/Resolved]
